FAERS Safety Report 22327535 (Version 1)
Quarter: 2023Q2

REPORT INFORMATION
  Report Type: Report from Study
  Country: US (occurrence: US)
  Receive Date: 20230516
  Receipt Date: 20230516
  Transmission Date: 20230722
  Serious: No
  Sender: FDA-Public Use
  Company Number: US-LUNDBECK-DKLU3060847

PATIENT
  Age: 38 Year
  Sex: Female

DRUGS (1)
  1. VYEPTI [Suspect]
     Active Substance: EPTINEZUMAB-JJMR
     Indication: Migraine
     Route: 041
     Dates: start: 20230412

REACTIONS (3)
  - Chromaturia [Unknown]
  - Urine abnormality [Unknown]
  - Renal pain [Unknown]

NARRATIVE: CASE EVENT DATE: 20230412
